FAERS Safety Report 23530844 (Version 1)
Quarter: 2024Q1

REPORT INFORMATION
  Report Type: Spontaneous
  Country: US (occurrence: None)
  Receive Date: 20240216
  Receipt Date: 20240216
  Transmission Date: 20240410
  Serious: Yes (Other)
  Sender: FDA-Public Use
  Company Number: US-ROCHE-3508863

PATIENT
  Sex: Female

DRUGS (14)
  1. XOLAIR [Suspect]
     Active Substance: OMALIZUMAB
     Indication: Asthma
     Route: 058
  2. DILTIAZEM [Concomitant]
     Active Substance: DILTIAZEM
  3. FUROSEMIDE [Concomitant]
     Active Substance: FUROSEMIDE
  4. LEVOTHYROXINE SODIUM [Concomitant]
     Active Substance: LEVOTHYROXINE SODIUM
  5. LOSARTAN POTASSIUM [Concomitant]
     Active Substance: LOSARTAN POTASSIUM
  6. PREDNISONE [Concomitant]
     Active Substance: PREDNISONE
  7. OMEPRAZOLE [Concomitant]
     Active Substance: OMEPRAZOLE
  8. ZYFLO CR [Concomitant]
     Active Substance: ZILEUTON
  9. FLUCONAZOLE [Concomitant]
     Active Substance: FLUCONAZOLE
  10. AMOXICILLIN [Concomitant]
     Active Substance: AMOXICILLIN
  11. HYDROCODONE [Concomitant]
     Active Substance: HYDROCODONE
  12. TAMIFLU [Concomitant]
     Active Substance: OSELTAMIVIR PHOSPHATE
  13. DEXILANT [Concomitant]
     Active Substance: DEXLANSOPRAZOLE
  14. KLOR-CON M20 [Concomitant]
     Active Substance: POTASSIUM CHLORIDE

REACTIONS (3)
  - Acute respiratory failure [Unknown]
  - Hypoxia [Unknown]
  - Cardiac failure [Unknown]
